FAERS Safety Report 4955895-X (Version None)
Quarter: 2006Q1

REPORT INFORMATION
  Report Type: 
  Country: None (occurrence: None)
  Receive Date: 20060327
  Receipt Date: 20060327
  Transmission Date: 20060701
  Serious: Yes (Hospitalization, Other)
  Sender: FDA-Public Use
  Company Number: None

PATIENT
  Sex: Female
  Weight: 78 kg

DRUGS (3)
  1. FLUOROURACIL [Suspect]
     Indication: COLON CANCER
     Dosage: 5375 MG
     Dates: start: 20060309
  2. LEUCOVORIN CALCIUM [Suspect]
     Dosage: 775 MG
     Dates: start: 20060307
  3. ELOXATIN [Suspect]
     Dosage: 162 MG
     Dates: start: 20060307

REACTIONS (2)
  - DEHYDRATION [None]
  - SYNCOPE [None]
